FAERS Safety Report 24196914 (Version 6)
Quarter: 2025Q1

REPORT INFORMATION
  Report Type: Report from Study
  Country: CA (occurrence: CA)
  Receive Date: 20240810
  Receipt Date: 20250217
  Transmission Date: 20250408
  Serious: Yes (Other)
  Sender: JOHNSON AND JOHNSON
  Company Number: CA-JNJFOC-20240708863

PATIENT
  Age: 79 Year
  Sex: Male

DRUGS (3)
  1. AKEEGA [Suspect]
     Active Substance: ABIRATERONE ACETATE\NIRAPARIB TOSYLATE MONOHYDRATE
     Indication: Prostate cancer metastatic
     Dosage: TWO 100MG/500MG TABLETS ONCE DAILY.
     Route: 048
     Dates: start: 20240506, end: 20240731
  2. AKEEGA [Suspect]
     Active Substance: ABIRATERONE ACETATE\NIRAPARIB TOSYLATE MONOHYDRATE
     Route: 048
     Dates: start: 20240509
  3. PREDNISONE [Concomitant]
     Active Substance: PREDNISONE
     Dosage: ALONG WITH AKEEGA AS PER MONOGRAPH

REACTIONS (8)
  - Diarrhoea [Recovering/Resolving]
  - Abdominal pain upper [Recovering/Resolving]
  - Vomiting [Not Recovered/Not Resolved]
  - Decreased appetite [Not Recovered/Not Resolved]
  - Nausea [Not Recovered/Not Resolved]
  - Fatigue [Unknown]
  - Off label use [Unknown]
  - Malaise [Unknown]
